FAERS Safety Report 22005975 (Version 1)
Quarter: 2023Q1

REPORT INFORMATION
  Report Type: Spontaneous
  Country: US (occurrence: US)
  Receive Date: 20230217
  Receipt Date: 20230217
  Transmission Date: 20230418
  Serious: No
  Sender: FDA-Public Use
  Company Number: US-UPSHER-SMITH LABORATORIES, LLC-2022USL00558

PATIENT
  Sex: Female

DRUGS (6)
  1. BUMETANIDE [Suspect]
     Active Substance: BUMETANIDE
     Indication: Fluid retention
     Dosage: 0.5 MG, 1X/DAY
  2. BUMETANIDE [Suspect]
     Active Substance: BUMETANIDE
     Dosage: 0.5 MG, 2X/DAY
  3. BUMETANIDE [Suspect]
     Active Substance: BUMETANIDE
     Dosage: 1.5 MG TOTAL (DIVIDED DOSE)
  4. BUMETANIDE [Suspect]
     Active Substance: BUMETANIDE
     Dosage: 1 MG, 2X/DAY
  5. BUMETANIDE [Suspect]
     Active Substance: BUMETANIDE
     Dosage: 2.5 MG TOTAL (DIVIDED DOSE)
  6. BUMETANIDE [Suspect]
     Active Substance: BUMETANIDE
     Dosage: 1.5 MG, 2X/DAY

REACTIONS (2)
  - Blood potassium decreased [Unknown]
  - Drug ineffective for unapproved indication [Not Recovered/Not Resolved]
